FAERS Safety Report 7786212-8 (Version None)
Quarter: 2011Q3

REPORT INFORMATION
  Report Type: 
  Country: None (occurrence: None)
  Receive Date: 20110929
  Receipt Date: 20110922
  Transmission Date: 20111222
  Serious: Yes (Hospitalization)
  Sender: FDA-Public Use
  Company Number: US-NOVOPROD-335706

PATIENT
  Sex: Male

DRUGS (3)
  1. NORDITROPIN FLEXPRO [Suspect]
     Dosage: UNK
     Route: 058
     Dates: start: 20110801
  2. ALLEGRA [Concomitant]
     Indication: MULTIPLE ALLERGIES
     Dosage: UNK
  3. NORDITROPIN FLEXPRO [Suspect]
     Indication: GROWTH HORMONE DEFICIENCY
     Dosage: UNK
     Route: 058
     Dates: start: 20110601

REACTIONS (2)
  - APPENDICITIS [None]
  - NEPHROLITHIASIS [None]
